FAERS Safety Report 9706229 (Version 2)
Quarter: 2013Q4

REPORT INFORMATION
  Report Type: Spontaneous
  Country: US (occurrence: US)
  Receive Date: 20131125
  Receipt Date: 20131129
  Transmission Date: 20140711
  Serious: Yes (Death)
  Sender: FDA-Public Use
  Company Number: US-AMGEN-USASP2013081903

PATIENT
  Age: 63 Year
  Sex: Female
  Weight: 66.66 kg

DRUGS (7)
  1. PROLIA [Suspect]
     Indication: OSTEOPOROSIS
     Dosage: 60 MG, Q6MO
     Route: 058
     Dates: start: 20110524
  2. PROLIA [Suspect]
     Dosage: 60 MG, Q6MO
     Route: 058
     Dates: start: 20111129
  3. PROLIA [Suspect]
     Dosage: 60 MG, Q6MO
     Route: 058
     Dates: start: 20120604
  4. PROLIA [Suspect]
     Dosage: 60 MG, Q6MO
     Route: 058
     Dates: start: 20130103
  5. PROLIA [Suspect]
     Dosage: 60 MG, Q6MO
     Route: 058
     Dates: start: 20130708
  6. CRESTOR [Concomitant]
     Indication: HYPERLIPIDAEMIA
     Dosage: 5 MG, QD
     Route: 048
  7. WELLBUTRIN [Concomitant]
     Indication: DEPRESSION
     Dosage: 150 MG, QD
     Route: 048

REACTIONS (1)
  - Myocardial infarction [Fatal]
